FAERS Safety Report 20597603 (Version 2)
Quarter: 2022Q1

REPORT INFORMATION
  Report Type: Spontaneous
  Country: US (occurrence: None)
  Receive Date: 20220315
  Receipt Date: 20220315
  Transmission Date: 20220423
  Serious: No
  Sender: FDA-Public Use
  Company Number: US-ROCHE-2977892

PATIENT
  Age: 45 Year
  Sex: Female
  Weight: 106.6 kg

DRUGS (3)
  1. XOLAIR [Suspect]
     Active Substance: OMALIZUMAB
     Indication: Urticaria chronic
     Dosage: 1 INJECTION, STRENGTH:150 MG/ML
     Route: 058
     Dates: start: 20210812
  2. XOLAIR [Suspect]
     Active Substance: OMALIZUMAB
  3. XOLAIR [Suspect]
     Active Substance: OMALIZUMAB

REACTIONS (2)
  - Urinary tract infection [Unknown]
  - Cystitis [Unknown]

NARRATIVE: CASE EVENT DATE: 20211208
